FAERS Safety Report 8927817 (Version 1)
Quarter: 2012Q4

REPORT INFORMATION
  Report Type: 
  Country: JP (occurrence: JP)
  Receive Date: 20121127
  Receipt Date: 20121127
  Transmission Date: 20130627
  Serious: Yes (Hospitalization)
  Sender: FDA-Public Use
  Company Number: JP-MYLANLABS-2012S1023696

PATIENT
  Age: 72 Year
  Sex: Male
  Weight: 48.8 kg

DRUGS (3)
  1. LANSOPRAZOLE [Suspect]
     Indication: HELICOBACTER INFECTION
     Dosage: 60 mg/day
     Route: 065
     Dates: start: 200901
  2. AMOXICILLIN [Concomitant]
     Indication: HELICOBACTER INFECTION
     Dosage: 1500 mg/day
     Route: 065
     Dates: start: 200901
  3. CLARITHROMYCIN [Concomitant]
     Indication: HELICOBACTER INFECTION
     Dosage: 800 mg/day
     Route: 065
     Dates: start: 200901

REACTIONS (1)
  - Inappropriate antidiuretic hormone secretion [Recovered/Resolved]
